FAERS Safety Report 9819528 (Version 1)
Quarter: 2014Q1

REPORT INFORMATION
  Report Type: Spontaneous
  Country: US (occurrence: None)
  Receive Date: 20140113
  Receipt Date: 20140113
  Transmission Date: 20141002
  Serious: Yes (Other)
  Sender: FDA-Public Use
  Company Number: 2014P1000019

PATIENT
  Age: 41 Month
  Sex: Female

DRUGS (1)
  1. TESTOSTERONE [Suspect]

REACTIONS (3)
  - Exposure via father [None]
  - Accidental exposure to product by child [None]
  - Precocious puberty [None]
